FAERS Safety Report 10103893 (Version 2)
Quarter: 2014Q2

REPORT INFORMATION
  Report Type: Spontaneous
  Country: US (occurrence: US)
  Receive Date: 20140424
  Receipt Date: 20140521
  Transmission Date: 20141212
  Serious: Yes (Other)
  Sender: FDA-Public Use
  Company Number: US-UCBSA-118970

PATIENT
  Age: 65 Year
  Sex: Male
  Weight: 73.9 kg

DRUGS (15)
  1. CIMZIA [Suspect]
     Indication: CROHN^S DISEASE
     Route: 058
     Dates: start: 20131119
  2. CIMZIA [Suspect]
     Indication: ENTERITIS
     Route: 058
     Dates: start: 20131119
  3. CIMZIA [Suspect]
     Indication: CROHN^S DISEASE
     Dosage: STRENGTH: 200 MG
     Route: 058
  4. CIMZIA [Suspect]
     Indication: ENTERITIS
     Dosage: STRENGTH: 200 MG
     Route: 058
  5. TESTOSTERONE OIL [Concomitant]
  6. LISINOPRIL/HCTZ [Concomitant]
  7. OMEPRAZOLE [Concomitant]
  8. DITROPAN [Concomitant]
  9. TESTOSTERONE ENANTHATE [Concomitant]
  10. TESTOSTERONE CYPIONATE [Concomitant]
  11. VIT B 12 [Concomitant]
  12. ZOLPIDEM [Concomitant]
     Indication: SLEEP DISORDER
  13. VIAGRA [Concomitant]
  14. VESICARE [Concomitant]
  15. NEXIUM [Concomitant]

REACTIONS (1)
  - Thrombosis [Unknown]
